FAERS Safety Report 6286751-5 (Version None)
Quarter: 2009Q3

REPORT INFORMATION
  Report Type: 
  Country: None (occurrence: None)
  Receive Date: 20090728
  Receipt Date: 20000622
  Transmission Date: 20100115
  Serious: Yes (Hospitalization, Other)
  Sender: FDA-Public Use
  Company Number: FR-NOVOPROD-204311

PATIENT
  Age: 72 Year
  Sex: Female

DRUGS (4)
  1. NOVOSEVEN [Suspect]
  2. TRANEXAMIC ACID [Concomitant]
     Route: 042
  3. TRANEXAMIC ACID [Concomitant]
  4. RED BLOOD CELLS [Concomitant]

REACTIONS (3)
  - DEEP VEIN THROMBOSIS [None]
  - DRUG INEFFECTIVE [None]
  - PULMONARY EMBOLISM [None]
